FAERS Safety Report 23226531 (Version 1)
Quarter: 2023Q4

REPORT INFORMATION
  Report Type: Spontaneous
  Country: CO (occurrence: CO)
  Receive Date: 20231124
  Receipt Date: 20231124
  Transmission Date: 20240110
  Serious: Yes (Death, Hospitalization, Other)
  Sender: FDA-Public Use
  Company Number: CO-BAXTER-2023BAX036064

PATIENT
  Age: 84 Year
  Sex: Male
  Weight: 69 kg

DRUGS (16)
  1. DIANEAL PD-2 WITH DEXTROSE [Suspect]
     Active Substance: CALCIUM CHLORIDE\DEXTROSE\MAGNESIUM CHLORIDE\SODIUM CHLORIDE\SODIUM LACTATE
     Indication: Peritoneal dialysis
     Dosage: 2 BAGS, ONE BAG OF 6 LITERS AND ONE BAG OF 2 LITERS
     Route: 033
     Dates: start: 20220521
  2. HYDROMORPHONE HYDROCHLORIDE [Concomitant]
     Active Substance: HYDROMORPHONE HYDROCHLORIDE
     Dosage: 1 TABLET EVERY 12 HOURS
     Route: 048
  3. ALLOPURINOL [Concomitant]
     Active Substance: ALLOPURINOL
     Dosage: 300 MG, ONE TABET EVERY 24 HOURS
     Route: 048
  4. CARVEDILOL [Concomitant]
     Active Substance: CARVEDILOL
     Dosage: 12.5 MG ONE TABLET EVERY 12 HOURS
     Route: 048
  5. LEVOTHYROXINE [Concomitant]
     Active Substance: LEVOTHYROXINE
     Dosage: 175 MCG, 50 TABLETS FOR THE MONTH
     Route: 048
  6. POLYETHYLENE GLYCOL [Concomitant]
     Active Substance: POLYETHYLENE GLYCOL
     Dosage: POWDER 17 G, 1 SACHET PER DAY
     Route: 065
  7. ENSOY DIABETICOS [Concomitant]
     Dosage: SPECIAL SOY PROTEIN 400 GM CAN FOR DIABETIC PATIENTS, 4 MEASURES A DAY
     Route: 065
  8. CALCIUM CARBONATE\CHOLECALCIFEROL [Concomitant]
     Active Substance: CALCIUM CARBONATE\CHOLECALCIFEROL
     Dosage: 500 MG PLUS 200 IU, ONE TABLET A DAY
     Route: 065
  9. BISACODYL [Concomitant]
     Active Substance: BISACODYL
     Dosage: 5 MG, ONE TABLET AT NIGHT
     Route: 065
  10. CHOLECALCIFEROL [Concomitant]
     Active Substance: CHOLECALCIFEROL
     Dosage: SOFTGEL 2000 IU (2MG), 1 TABLET A DAY
     Route: 048
  11. ASPIRIN [Concomitant]
     Active Substance: ASPIRIN
     Dosage: 100 MG, ONE TABLET DAILY
     Route: 048
  12. FUROSEMIDE [Concomitant]
     Active Substance: FUROSEMIDE
     Dosage: 40 MG, 2 TABLETS AT MORNING (AM)
     Route: 048
  13. FUROSEMIDE [Concomitant]
     Active Substance: FUROSEMIDE
     Dosage: 40 MG, 1 TABLETS AT EVENING (PM)
     Route: 048
  14. ATORVASTATIN [Concomitant]
     Active Substance: ATORVASTATIN
     Dosage: 40 MG, 1 TABLET EACH NIGHT
     Route: 048
  15. CLOPIDOGREL [Concomitant]
     Active Substance: CLOPIDOGREL BISULFATE
     Dosage: 75 MG, 1 TABLET DAILY
     Route: 048
  16. GENTAMICIN [Concomitant]
     Active Substance: GENTAMICIN
     Dosage: (DERM) 0.1%
     Route: 065

REACTIONS (7)
  - Cardiac failure [Fatal]
  - Atrioventricular block second degree [Fatal]
  - Ejection fraction decreased [Fatal]
  - Myocardial ischaemia [Fatal]
  - Ventricular tachycardia [Recovered/Resolved]
  - Syncope [Recovered/Resolved]
  - Acute myocardial infarction [Unknown]

NARRATIVE: CASE EVENT DATE: 20231104
